FAERS Safety Report 25913487 (Version 1)
Quarter: 2025Q4

REPORT INFORMATION
  Report Type: Spontaneous
  Country: CN (occurrence: CN)
  Receive Date: 20251013
  Receipt Date: 20251013
  Transmission Date: 20260118
  Serious: Yes (Other)
  Sender: SANOFI AVENTIS
  Company Number: CN-DialogSolutions-SAAVPROD-PI828929-C2

PATIENT
  Age: 71 Year
  Sex: Male

DRUGS (2)
  1. DUPILUMAB [Suspect]
     Active Substance: DUPILUMAB
     Indication: Dermatitis atopic
     Dosage: 600 MG, LOADING DOSE
     Route: 058
  2. DUPILUMAB [Suspect]
     Active Substance: DUPILUMAB
     Dosage: 300 MG, QOW
     Route: 058

REACTIONS (11)
  - Papuloerythroderma of Ofuji [Recovering/Resolving]
  - Dermatitis exfoliative generalised [Recovering/Resolving]
  - Eosinophilia [Recovering/Resolving]
  - Lymphopenia [Recovering/Resolving]
  - Skin hyperpigmentation [Recovering/Resolving]
  - Hyperkeratosis [Recovering/Resolving]
  - Parakeratosis [Recovering/Resolving]
  - Eczema [Recovering/Resolving]
  - Lymphocytic infiltration [Recovering/Resolving]
  - Skin lesion [Recovering/Resolving]
  - Dermatitis atopic [Unknown]
